FAERS Safety Report 7171793-8 (Version None)
Quarter: 2010Q4

REPORT INFORMATION
  Report Type: 
  Country: None (occurrence: None)
  Receive Date: 20101217
  Receipt Date: 20101210
  Transmission Date: 20110411
  Serious: Yes (Hospitalization)
  Sender: FDA-Public Use
  Company Number: US-B.I. PHARMACEUTICALS,INC./RIDGEFIELD-2010-BP-14381BP

PATIENT
  Age: 80 Year
  Sex: Male

DRUGS (1)
  1. FLOMAX [Suspect]
     Indication: PROSTATE CANCER
     Dosage: 0.4 MG
     Route: 048
     Dates: start: 19970101, end: 20080101

REACTIONS (7)
  - ABDOMINAL DISCOMFORT [None]
  - ARTHRITIS [None]
  - ATRIAL FIBRILLATION [None]
  - BACK PAIN [None]
  - CARDIAC DISORDER [None]
  - CATARACT [None]
  - OSTEOPOROSIS [None]
